FAERS Safety Report 6602959-0 (Version None)
Quarter: 2010Q1

REPORT INFORMATION
  Report Type: 
  Country: None (occurrence: None)
  Receive Date: 20100226
  Receipt Date: 20100222
  Transmission Date: 20100710
  Serious: Yes (Life-Threatening, Other)
  Sender: FDA-Public Use
  Company Number: BE-JNJFOC-20100204737

PATIENT
  Sex: Female
  Weight: 60 kg

DRUGS (1)
  1. NIZORAL [Suspect]
     Indication: TINEA VERSICOLOUR
     Route: 048

REACTIONS (6)
  - BLOOD PRESSURE DECREASED [None]
  - HYPERSENSITIVITY [None]
  - PRURITUS GENERALISED [None]
  - RASH [None]
  - SHOCK [None]
  - SWELLING FACE [None]
